FAERS Safety Report 24005939 (Version 2)
Quarter: 2024Q3

REPORT INFORMATION
  Report Type: Report from Study
  Country: IE (occurrence: IE)
  Receive Date: 20240624
  Receipt Date: 20240701
  Transmission Date: 20241017
  Serious: Yes (Other)
  Sender: BAXTER
  Company Number: IE-BAXTER-2024BAX020107

PATIENT
  Age: 23 Year
  Sex: Male

DRUGS (5)
  1. SODIUM CHLORIDE [Suspect]
     Active Substance: SODIUM CHLORIDE
     Indication: Medication dilution
     Dosage: 50 ML OD OVER 30 MINS
     Route: 042
     Dates: start: 20240612, end: 20240615
  2. WATER [Suspect]
     Active Substance: WATER
     Indication: Medication dilution
     Dosage: AT AN UNSPECIFIED DOSE OD OVER 30 MINS
     Route: 042
     Dates: start: 20240612, end: 20240615
  3. CEFTRIAXONE [Suspect]
     Active Substance: CEFTRIAXONE\CEFTRIAXONE SODIUM
     Indication: Pneumonia
     Dosage: 2000 MG (2 G), OD 50 ML OVER 30 MINS, (MANUFACTURER: IBI, INSTITUTO BIOCHIMICO ITALIANO)
     Route: 042
     Dates: start: 20240612, end: 20240615
  4. CLARITHROMYCIN [Suspect]
     Active Substance: CLARITHROMYCIN
     Dosage: 500 MG, BD
     Route: 048
     Dates: start: 20240613, end: 20240615
  5. UNSPECIFIED INGREDIENT [Suspect]
     Active Substance: UNSPECIFIED INGREDIENT
     Dosage: UNK
     Route: 065

REACTIONS (2)
  - Rash [Recovered/Resolved]
  - C-reactive protein abnormal [Recovering/Resolving]

NARRATIVE: CASE EVENT DATE: 20240614
